FAERS Safety Report 8237411-2 (Version None)
Quarter: 2012Q1

REPORT INFORMATION
  Report Type: 
  Country: None (occurrence: None)
  Receive Date: 20120323
  Receipt Date: 20120306
  Transmission Date: 20120608
  Serious: Yes (Hospitalization)
  Sender: FDA-Public Use
  Company Number: ZYD-12-AE-031

PATIENT
  Age: 60 Year
  Sex: Male

DRUGS (5)
  1. B-COMPLEX VITAMINS [Concomitant]
  2. CO-Q 10 VITAMINS [Concomitant]
  3. VYTORIN [Concomitant]
  4. ASPIRIN [Concomitant]
  5. LOSARTAN POTASSIUM [Suspect]
     Indication: HYPERTENSION
     Dosage: 100MG-DAILY-ORAL
     Route: 048
     Dates: start: 20111219, end: 20120124

REACTIONS (11)
  - WRONG TECHNIQUE IN DRUG USAGE PROCESS [None]
  - TREATMENT NONCOMPLIANCE [None]
  - DYSARTHRIA [None]
  - PRODUCT SUBSTITUTION ISSUE [None]
  - FALL [None]
  - PRODUCT FORMULATION ISSUE [None]
  - ATRIOVENTRICULAR BLOCK COMPLETE [None]
  - PRODUCT QUALITY ISSUE [None]
  - LOSS OF CONSCIOUSNESS [None]
  - FEELING DRUNK [None]
  - DIZZINESS [None]
